FAERS Safety Report 12680446 (Version 1)
Quarter: 2016Q3

REPORT INFORMATION
  Report Type: Spontaneous
  Country: GB (occurrence: GB)
  Receive Date: 20160824
  Receipt Date: 20160824
  Transmission Date: 20161109
  Serious: Yes (Hospitalization, Other)
  Sender: FDA-Public Use
  Company Number: GB-TEVA-686895ISR

PATIENT
  Age: 19 Year
  Sex: Female

DRUGS (8)
  1. LYSERGIC ACID DIETHYLAMIDE [Suspect]
     Active Substance: LYSERGIDE
     Dosage: LSD
     Route: 060
  2. CITALOPRAM [Suspect]
     Active Substance: CITALOPRAM HYDROBROMIDE
     Indication: DEPRESSION
  3. CANNABIS [Suspect]
     Active Substance: CANNABIS SATIVA SUBSP. INDICA TOP
  4. 3,4-METHYLENEDIOXYMETHAMPHETAMINE [Concomitant]
  5. METHYLPHENIDATE. [Concomitant]
     Active Substance: METHYLPHENIDATE
  6. COCAINE [Concomitant]
     Active Substance: COCAINE
  7. FLUOXETINE [Suspect]
     Active Substance: FLUOXETINE HYDROCHLORIDE
     Indication: DEPRESSION
  8. MUSHROOM [Suspect]
     Active Substance: CULTIVATED MUSHROOM
     Route: 048

REACTIONS (5)
  - Tonic convulsion [Recovered/Resolved]
  - Coma scale abnormal [Recovered/Resolved]
  - Toxicity to various agents [Recovered/Resolved]
  - Respiratory acidosis [Recovered/Resolved]
  - Hallucination, visual [Recovered/Resolved]
